FAERS Safety Report 7717823-3 (Version None)
Quarter: 2011Q3

REPORT INFORMATION
  Report Type: 
  Country: None (occurrence: None)
  Receive Date: 20110830
  Receipt Date: 20110824
  Transmission Date: 20111222
  Serious: Yes (Death)
  Sender: FDA-Public Use
  Company Number: US-CELGENEUS-163-21880-11082748

PATIENT
  Sex: Male

DRUGS (9)
  1. FISH OIL [Concomitant]
     Route: 065
  2. REVLIMID [Suspect]
     Indication: PROSTATE CANCER
     Dosage: 10 MILLIGRAM
     Route: 048
     Dates: start: 20101006
  3. XANAX [Concomitant]
     Route: 065
  4. CARVEDILOL [Concomitant]
     Route: 065
  5. ASPIRIN [Concomitant]
     Route: 065
  6. SIMAVASTATIN [Concomitant]
     Route: 065
  7. PREDNISONE [Concomitant]
     Route: 065
  8. VITAMIN D [Concomitant]
     Route: 065
  9. VITAMIN B COMPLEX CAP [Concomitant]
     Dosage: 100
     Route: 065

REACTIONS (1)
  - DISEASE PROGRESSION [None]
